FAERS Safety Report 9601974 (Version 2)
Quarter: 2013Q4

REPORT INFORMATION
  Report Type: Spontaneous
  Country: IE (occurrence: IE)
  Receive Date: 20131007
  Receipt Date: 20131107
  Transmission Date: 20140711
  Serious: Yes (Other)
  Sender: FDA-Public Use
  Company Number: PHFR2013IE005570

PATIENT
  Age: 24 Year
  Sex: Male

DRUGS (4)
  1. CLOZARIL [Suspect]
     Indication: SCHIZOPHRENIA
     Dosage: UNK UKN, UNK
     Route: 048
     Dates: start: 20130912
  2. CLOZARIL [Suspect]
     Indication: PSYCHOTIC DISORDER
     Dosage: 125 MG, BID
     Route: 048
     Dates: start: 20130927, end: 20130928
  3. CLOZARIL [Suspect]
     Dosage: 150 MG, BID
     Route: 048
     Dates: start: 20130929, end: 20130930
  4. AKINETON                                /SCH/ [Concomitant]
     Dosage: 2 MG, TID
     Route: 048
     Dates: start: 201310

REACTIONS (6)
  - Myocarditis [Recovered/Resolved]
  - Eosinophil count increased [Recovered/Resolved]
  - Troponin increased [Recovered/Resolved]
  - Chest pain [Recovered/Resolved]
  - Productive cough [Unknown]
  - Ejection fraction decreased [Unknown]
